FAERS Safety Report 13927940 (Version 1)
Quarter: 2017Q3

REPORT INFORMATION
  Report Type: Spontaneous
  Country: US (occurrence: None)
  Receive Date: 20170831
  Receipt Date: 20170831
  Transmission Date: 20171127
  Serious: Yes (Hospitalization)
  Sender: FDA-Public Use
  Company Number: None

PATIENT
  Age: 77 Year
  Sex: Female

DRUGS (3)
  1. TYLENOL [Concomitant]
     Active Substance: ACETAMINOPHEN
  2. XENAZINE [Suspect]
     Active Substance: TETRABENAZINE
     Indication: PROSTATE CANCER
     Route: 048
     Dates: start: 20170207
  3. TETRABENAZINE. [Concomitant]
     Active Substance: TETRABENAZINE

REACTIONS (1)
  - Fall [None]

NARRATIVE: CASE EVENT DATE: 201708
